FAERS Safety Report 5805842-3 (Version None)
Quarter: 2008Q3

REPORT INFORMATION
  Report Type: 
  Country: None (occurrence: None)
  Receive Date: 20080708
  Receipt Date: 20080627
  Transmission Date: 20090109
  Serious: Yes (Other)
  Sender: FDA-Public Use
  Company Number: 87216

PATIENT
  Age: 37 Year
  Sex: Female
  Weight: 57 kg

DRUGS (1)
  1. ACETAMINOPHEN [Suspect]
     Indication: PYREXIA
     Dosage: 1 G/DAILY X 3 AYS/ORAL
     Route: 048

REACTIONS (11)
  - ALANINE AMINOTRANSFERASE INCREASED [None]
  - ASPARTATE AMINOTRANSFERASE INCREASED [None]
  - HEPATIC NECROSIS [None]
  - HEPATOTOXICITY [None]
  - HYPERTRANSAMINASAEMIA [None]
  - IDIOSYNCRATIC DRUG REACTION [None]
  - ILL-DEFINED DISORDER [None]
  - INFLAMMATION [None]
  - INFLUENZA LIKE ILLNESS [None]
  - LABORATORY TEST ABNORMAL [None]
  - NEEDLE BIOPSY SITE UNSPECIFIED ABNORMAL [None]
